FAERS Safety Report 13083219 (Version 3)
Quarter: 2017Q1

REPORT INFORMATION
  Report Type: Spontaneous
  Country: ZA (occurrence: ZA)
  Receive Date: 20170104
  Receipt Date: 20170124
  Transmission Date: 20170428
  Serious: Yes (Death, Life-Threatening, Hospitalization, Disabling, Other)
  Sender: FDA-Public Use
  Company Number: ZA-CIPLA LTD.-2016ZA23299

PATIENT

DRUGS (4)
  1. SOLU-CORTEF [Suspect]
     Active Substance: HYDROCORTISONE SODIUM SUCCINATE
     Indication: CHRONIC OBSTRUCTIVE PULMONARY DISEASE
     Dosage: 200 MG, STAT
     Route: 042
  2. CIPLA AZITHROMYCIN [Suspect]
     Active Substance: AZITHROMYCIN
     Indication: EVIDENCE BASED TREATMENT
     Dosage: 500 MG (10 ML VIAL), STAT
     Route: 042
  3. AUGMENTIN [Suspect]
     Active Substance: AMOXICILLIN\CLAVULANATE POTASSIUM
     Indication: PNEUMONIA
     Dosage: 1.2 G, STAT
     Route: 042
  4. WARFARIN [Suspect]
     Active Substance: WARFARIN
     Dosage: UNK
     Route: 065

REACTIONS (11)
  - Chronic obstructive pulmonary disease [Unknown]
  - Brain injury [Unknown]
  - Seizure [Unknown]
  - Atrial fibrillation [Unknown]
  - Circulatory collapse [Unknown]
  - Anaphylactic reaction [Not Recovered/Not Resolved]
  - Death [Fatal]
  - Cardiac failure congestive [Unknown]
  - Condition aggravated [Unknown]
  - Pneumonia [Unknown]
  - Acute kidney injury [Unknown]

NARRATIVE: CASE EVENT DATE: 20161117
